FAERS Safety Report 8220589-4 (Version None)
Quarter: 2012Q1

REPORT INFORMATION
  Report Type: 
  Country: None (occurrence: None)
  Receive Date: 20120320
  Receipt Date: 20120312
  Transmission Date: 20120608
  Serious: Yes (Other)
  Sender: FDA-Public Use
  Company Number: TW-GENZYME-THYM-1003166

PATIENT
  Age: 10 Year
  Sex: Male

DRUGS (12)
  1. CYCLOSPORINE [Concomitant]
     Indication: APLASTIC ANAEMIA
     Dosage: 10 MG/KG, QD
     Route: 065
  2. THYMOGLOBULIN [Suspect]
     Indication: BONE MARROW CONDITIONING REGIMEN
     Dosage: 2.5 MG/KG, QD
     Route: 042
  3. METHYLPREDNISOLONE [Concomitant]
     Indication: APLASTIC ANAEMIA
     Dosage: 5 MG/KG, QD
     Route: 065
  4. METHYLPREDNISOLONE [Concomitant]
     Dosage: 1 MG/KG, QD
     Route: 065
  5. NEUPOGEN [Concomitant]
     Indication: APLASTIC ANAEMIA
     Dosage: 10 MCG/KG, QD
     Route: 065
  6. CYCLOPHOSPHAMIDE [Concomitant]
     Indication: BONE MARROW CONDITIONING REGIMEN
     Dosage: 50 MG/KG, QD
     Route: 065
  7. CYCLOPHOSPHAMIDE [Concomitant]
     Dosage: UNK
     Route: 065
  8. METHOTREXATE [Concomitant]
     Indication: PROPHYLAXIS AGAINST GRAFT VERSUS HOST DISEASE
     Dosage: UNK
     Route: 065
  9. NEUPOGEN [Concomitant]
     Indication: PRODUCT USED FOR UNKNOWN INDICATION
     Dosage: 10 MCG/KG, QD
     Route: 065
  10. GRANULOCYTE CONCENTRATES [Concomitant]
     Indication: PRODUCT USED FOR UNKNOWN INDICATION
     Dosage: UNK
     Route: 065
  11. CYCLOSPORINE [Concomitant]
     Indication: PROPHYLAXIS AGAINST GRAFT VERSUS HOST DISEASE
  12. THYMOGLOBULIN [Suspect]
     Indication: APLASTIC ANAEMIA
     Dosage: 2.5 MG/KG, QD
     Route: 042

REACTIONS (7)
  - FEBRILE NEUTROPENIA [None]
  - ASPERGILLOSIS [None]
  - STEM CELL TRANSPLANT [None]
  - PANCYTOPENIA [None]
  - BRAIN ABSCESS [None]
  - ZYGOMYCOSIS [None]
  - CONVULSION [None]
